FAERS Safety Report 5369462-X (Version None)
Quarter: 2007Q2

REPORT INFORMATION
  Report Type: 
  Country: None (occurrence: None)
  Receive Date: 20070621
  Receipt Date: 20070614
  Transmission Date: 20071010
  Serious: Yes (Other)
  Sender: FDA-Public Use
  Company Number: 2007SP012005

PATIENT
  Age: 45 Year
  Sex: Female
  Weight: 55.7924 kg

DRUGS (4)
  1. PEG-INTRON [Suspect]
     Indication: HEPATITIS
     Dosage: SC
     Route: 058
     Dates: start: 20070303
  2. REBETOL [Suspect]
     Indication: HEPATITIS
     Dosage: PO
     Route: 048
     Dates: start: 20070303
  3. EFFEXOR [Concomitant]
  4. VISTARIL /00058402 [Concomitant]

REACTIONS (4)
  - BLOOD COUNT ABNORMAL [None]
  - DEHYDRATION [None]
  - GASTROENTERITIS VIRAL [None]
  - WEIGHT DECREASED [None]
